FAERS Safety Report 6346901-9 (Version None)
Quarter: 2009Q3

REPORT INFORMATION
  Report Type: 
  Country: None (occurrence: None)
  Receive Date: 20090909
  Receipt Date: 20090909
  Transmission Date: 20100115
  Serious: Yes (Hospitalization)
  Sender: FDA-Public Use
  Company Number: None

PATIENT
  Age: 49 Year
  Sex: Female
  Weight: 53.5244 kg

DRUGS (1)
  1. CHANTIX [Suspect]
     Dosage: 1 DAY
     Dates: start: 20090401, end: 20090429

REACTIONS (2)
  - LOSS OF EMPLOYMENT [None]
  - SUICIDE ATTEMPT [None]
